FAERS Safety Report 6867866-7 (Version None)
Quarter: 2010Q3

REPORT INFORMATION
  Report Type: 
  Country: None (occurrence: None)
  Receive Date: 20100722
  Receipt Date: 20080505
  Transmission Date: 20110219
  Serious: No
  Sender: FDA-Public Use
  Company Number: US-PFIZER INC-2008039028

PATIENT
  Sex: Female
  Weight: 63.6 kg

DRUGS (9)
  1. CHANTIX [Suspect]
     Indication: SMOKING CESSATION THERAPY
     Dates: start: 20071101
  2. VENLAFAXINE HYDROCHLORIDE [Concomitant]
  3. LAMICTAL [Concomitant]
  4. AMBIEN [Concomitant]
  5. ARICEPT [Concomitant]
  6. OMEPRAZOLE [Concomitant]
  7. CYCLOBENZAPRINE [Concomitant]
  8. OXYCODONE HCL AND ACETAMINOPHEN [Concomitant]
  9. HYDROCODONE [Concomitant]

REACTIONS (5)
  - DIARRHOEA [None]
  - DIZZINESS [None]
  - HEADACHE [None]
  - MALAISE [None]
  - NAUSEA [None]
